FAERS Safety Report 9746444 (Version 1)
Quarter: 2013Q4

REPORT INFORMATION
  Report Type: Spontaneous
  Country: IN (occurrence: IN)
  Receive Date: 20131211
  Receipt Date: 20131211
  Transmission Date: 20140711
  Serious: Yes (Other)
  Sender: FDA-Public Use
  Company Number: PHHY2013IN141645

PATIENT
  Age: 32 Year
  Sex: Male

DRUGS (2)
  1. RISPERIDONE [Suspect]
     Indication: PSYCHOTIC DISORDER
     Dosage: 4 MG, DAILY
     Route: 048
  2. LORAZEPAM [Concomitant]
     Indication: CATATONIA
     Dosage: 2 TO 4 MG, DAILY
     Route: 048

REACTIONS (3)
  - Ileus paralytic [Recovering/Resolving]
  - Abdominal distension [Recovering/Resolving]
  - Vomiting [Recovering/Resolving]
